FAERS Safety Report 25341851 (Version 1)
Quarter: 2025Q2

REPORT INFORMATION
  Report Type: Spontaneous
  Country: GB (occurrence: GB)
  Receive Date: 20250521
  Receipt Date: 20250521
  Transmission Date: 20250717
  Serious: Yes (Death, Hospitalization, Other)
  Sender: B BRAUN
  Company Number: GB-B.Braun Medical Inc.-2177188

PATIENT
  Age: 84 Year
  Sex: Female

DRUGS (15)
  1. ACETAMINOPHEN [Suspect]
     Active Substance: ACETAMINOPHEN
     Indication: Product used for unknown indication
     Dates: start: 20231130, end: 20231130
  2. ATORVASTATIN [Concomitant]
     Active Substance: ATORVASTATIN
  3. BISOPROLOL [Suspect]
     Active Substance: BISOPROLOL
  4. ZOPICLONE [Suspect]
     Active Substance: ZOPICLONE
  5. DURVALUMAB [Suspect]
     Active Substance: DURVALUMAB
  6. ENFORTUMAB VEDOTIN [Suspect]
     Active Substance: ENFORTUMAB VEDOTIN
  7. LORATADINE [Concomitant]
     Active Substance: LORATADINE
  8. PREDNISOLONE [Concomitant]
     Active Substance: PREDNISOLONE
  9. CLOBETASONE BUTYRATE [Concomitant]
     Active Substance: CLOBETASONE BUTYRATE
  10. FEXOFENADINE [Concomitant]
     Active Substance: FEXOFENADINE HYDROCHLORIDE
  11. CARBOXYMETHYLCELLULOSE [Concomitant]
     Active Substance: CARBOXYMETHYLCELLULOSE
  12. DERMOL [Concomitant]
     Active Substance: BENZALKONIUM CHLORIDE\CHLORHEXIDINE HYDROCHLORIDE\ISOPROPYL MYRISTATE\PARAFFIN
  13. DIGOXIN [Concomitant]
     Active Substance: DIGOXIN
  14. WARFARIN [Concomitant]
     Active Substance: WARFARIN
  15. OMEPRAZOLE [Concomitant]
     Active Substance: OMEPRAZOLE

REACTIONS (2)
  - Sepsis [Fatal]
  - Poisoning [Recovered/Resolved]
